FAERS Safety Report 4477485-8 (Version None)
Quarter: 2004Q4

REPORT INFORMATION
  Report Type: 
  Country: None (occurrence: None)
  Receive Date: 20041018
  Receipt Date: 20030616
  Transmission Date: 20050328
  Serious: Yes (Hospitalization)
  Sender: FDA-Public Use
  Company Number: US-GLAXOSMITHKLINE-A0412673A

PATIENT
  Age: 89 Year
  Sex: Female

DRUGS (1)
  1. ESKALITH [Suspect]
     Dosage: 600MG PER DAY
     Route: 048

REACTIONS (5)
  - FALL [None]
  - HAEMORRHAGE [None]
  - HALLUCINATION [None]
  - HEAD INJURY [None]
  - HYPOTHYROIDISM [None]
